FAERS Safety Report 9066358 (Version 1)
Quarter: 2013Q1

REPORT INFORMATION
  Report Type: Report from Study
  Country: US (occurrence: US)
  Receive Date: 20130131
  Receipt Date: 20130131
  Transmission Date: 20140127
  Serious: No
  Sender: FDA-Public Use
  Company Number: US-ABBOTT-12P-163-1007644-00

PATIENT
  Age: 57 Year
  Sex: Female

DRUGS (11)
  1. HUMIRA [Suspect]
     Indication: RHEUMATOID ARTHRITIS
     Dates: start: 201208
  2. METAFORMIN [Concomitant]
     Indication: DIABETES MELLITUS
  3. B12 SHOT [Concomitant]
     Indication: PERNICIOUS ANAEMIA
     Dosage: EVERY 3 WEEKS
  4. PREDNISONE [Concomitant]
     Indication: RHEUMATOID ARTHRITIS
     Dosage: 2.5MG DAILY
  5. VITAMIN D [Concomitant]
     Indication: VITAMIN D DECREASED
  6. SYNTHROID [Concomitant]
     Indication: THYROID DISORDER
     Dosage: 0.112MG DAILY
  7. CYMBALTA [Concomitant]
     Indication: ARTHRALGIA
     Dosage: 60MG DAILY
  8. RAMIPIRIL [Concomitant]
     Indication: BLOOD PRESSURE
     Dosage: 2.5MG DAILY
  9. GABAPENTIN [Concomitant]
     Indication: PRODUCT USED FOR UNKNOWN INDICATION
     Dosage: 300MG DAILY
  10. TRIAM/HCTZ [Concomitant]
     Indication: BLOOD PRESSURE
     Dosage: 37.5/25MG DAILY
  11. OXYCODONE [Concomitant]
     Indication: PAIN

REACTIONS (4)
  - Fatigue [Not Recovered/Not Resolved]
  - Oropharyngeal pain [Not Recovered/Not Resolved]
  - Oropharyngeal pain [Not Recovered/Not Resolved]
  - Rhinorrhoea [Not Recovered/Not Resolved]
